FAERS Safety Report 14367477 (Version 1)
Quarter: 2018Q1

REPORT INFORMATION
  Report Type: Spontaneous
  Country: US (occurrence: US)
  Receive Date: 20180108
  Receipt Date: 20180108
  Transmission Date: 20180509
  Serious: Yes (Hospitalization, Disabling)
  Sender: FDA-Public Use
  Company Number: None

PATIENT
  Age: 23 Year
  Sex: Male
  Weight: 69.75 kg

DRUGS (5)
  1. TRIAMCINOLONE [Suspect]
     Active Substance: TRIAMCINOLONE
     Indication: DERMATITIS ATOPIC
     Dates: start: 20090101, end: 20140722
  2. DESONIDE. [Suspect]
     Active Substance: DESONIDE
     Indication: DERMATITIS ATOPIC
     Dates: start: 20090101, end: 20140722
  3. DESONIDE. [Suspect]
     Active Substance: DESONIDE
     Indication: ECZEMA
     Dates: start: 20090101, end: 20140722
  4. DUPIXENT [Concomitant]
     Active Substance: DUPILUMAB
  5. TRIAMCINOLONE [Suspect]
     Active Substance: TRIAMCINOLONE
     Indication: ECZEMA
     Dates: start: 20090101, end: 20140722

REACTIONS (14)
  - Eczema [None]
  - Burning sensation [None]
  - Asthenia [None]
  - Rash pruritic [None]
  - Secretion discharge [None]
  - Emotional distress [None]
  - Eye infection [None]
  - Skin odour abnormal [None]
  - Prescribed overdose [None]
  - Rash [None]
  - Rash erythematous [None]
  - Drug ineffective [None]
  - Genital infection [None]
  - Pruritus [None]

NARRATIVE: CASE EVENT DATE: 20100113
